FAERS Safety Report 6902112-7 (Version None)
Quarter: 2010Q3

REPORT INFORMATION
  Report Type: 
  Country: None (occurrence: None)
  Receive Date: 20100803
  Receipt Date: 20080418
  Transmission Date: 20110219
  Serious: Yes (Other)
  Sender: FDA-Public Use
  Company Number: US-PFIZER INC-2008034990

PATIENT
  Sex: Male
  Weight: 70.8 kg

DRUGS (3)
  1. LYRICA [Suspect]
     Indication: FIBROMYALGIA
     Dates: start: 20070101
  2. TRAMADOL HYDROCHLORIDE [Concomitant]
  3. XANAX [Concomitant]

REACTIONS (5)
  - DIZZINESS [None]
  - GAIT DISTURBANCE [None]
  - HYPERACUSIS [None]
  - MEDICATION ERROR [None]
  - SOMNOLENCE [None]
